FAERS Safety Report 4617553-0 (Version None)
Quarter: 2005Q1

REPORT INFORMATION
  Report Type: 
  Country: None (occurrence: None)
  Receive Date: 20050322
  Receipt Date: 20050314
  Transmission Date: 20050727
  Serious: Yes (Other)
  Sender: FDA-Public Use
  Company Number: HQWYE495723FEB05

PATIENT
  Age: 5 Year
  Sex: Male
  Weight: 23.61 kg

DRUGS (6)
  1. ALAVERT [Suspect]
     Indication: LACRIMATION INCREASED
     Dosage: ONE TABLET DAILY, AS RECOMMENDED BY PHYSICIAN, ORAL
     Route: 048
     Dates: start: 20050215, end: 20050216
  2. ALAVERT [Suspect]
     Indication: RHINORRHOEA
     Dosage: ONE TABLET DAILY, AS RECOMMENDED BY PHYSICIAN, ORAL
     Route: 048
     Dates: start: 20050215, end: 20050216
  3. TRIMOX [Concomitant]
  4. SINGULAIR [Concomitant]
  5. XOPENEX [Concomitant]
  6. PULMICORT [Concomitant]

REACTIONS (3)
  - COLD SWEAT [None]
  - PANIC REACTION [None]
  - TREMOR [None]
